FAERS Safety Report 6242143-6 (Version None)
Quarter: 2009Q2

REPORT INFORMATION
  Report Type: 
  Country: None (occurrence: None)
  Receive Date: 20090622
  Receipt Date: 20090622
  Transmission Date: 20091009
  Serious: Yes (Other)
  Sender: FDA-Public Use
  Company Number: None

PATIENT
  Sex: Female
  Weight: 80.7403 kg

DRUGS (2)
  1. BUPROPION HCL [Suspect]
     Dosage: 150 MG BID PO
     Route: 048
  2. WELLBUTRIN SR [Suspect]

REACTIONS (8)
  - ANXIETY [None]
  - CONDITION AGGRAVATED [None]
  - CRYING [None]
  - DECREASED APPETITE [None]
  - DEPRESSED MOOD [None]
  - DRUG INEFFECTIVE [None]
  - FEELING OF DESPAIR [None]
  - PRODUCT SUBSTITUTION ISSUE [None]
